FAERS Safety Report 5069842-6 (Version None)
Quarter: 2006Q3

REPORT INFORMATION
  Report Type: 
  Country: None (occurrence: None)
  Receive Date: 20060803
  Receipt Date: 20060726
  Transmission Date: 20061208
  Serious: Yes (Hospitalization, Other)
  Sender: FDA-Public Use
  Company Number: US-JNJFOC-20060705318

PATIENT
  Sex: Female

DRUGS (6)
  1. MOTRIN [Suspect]
     Indication: JOINT SWELLING
     Dosage: 1 TO 2 TABLETS A DAY
  2. ALEVE (CAPLET) [Suspect]
     Indication: JOINT SWELLING
     Dosage: 1 TO 2 TABLETS A DAY
     Route: 048
  3. ALTACE [Concomitant]
     Route: 048
  4. LIPITOR [Concomitant]
     Dosage: 40 MG DAILY (HS)
     Route: 048
  5. GLIPIZIDE [Concomitant]
     Dosage: 2.5 MG BEFORE BREAKFAST DAILY
     Route: 048
  6. ACTOS [Concomitant]
     Route: 048

REACTIONS (4)
  - ANAEMIA [None]
  - DIVERTICULITIS [None]
  - GASTRIC ULCER [None]
  - UPPER GASTROINTESTINAL HAEMORRHAGE [None]
